FAERS Safety Report 11447177 (Version 1)
Quarter: 2015Q3

REPORT INFORMATION
  Report Type: Report from Study
  Country: US (occurrence: US)
  Receive Date: 20150902
  Receipt Date: 20150902
  Transmission Date: 20151125
  Serious: Yes (Death)
  Sender: FDA-Public Use
  Company Number: PHEH2015US016976

PATIENT
  Age: 43 Year
  Sex: Female

DRUGS (1)
  1. TOBI PODHALER [Suspect]
     Active Substance: TOBRAMYCIN
     Indication: CYSTIC FIBROSIS
     Dosage: 28 MG, Q12H
     Route: 055
     Dates: start: 20150320

REACTIONS (1)
  - Death [Fatal]

NARRATIVE: CASE EVENT DATE: 20150819
